FAERS Safety Report 5834303-0 (Version None)
Quarter: 2008Q3

REPORT INFORMATION
  Report Type: 
  Country: None (occurrence: None)
  Receive Date: 20080731
  Receipt Date: 20080718
  Transmission Date: 20090109
  Serious: Yes (Hospitalization)
  Sender: FDA-Public Use
  Company Number: 232705J08USA

PATIENT
  Age: 29 Year
  Sex: Female

DRUGS (5)
  1. REBIF [Suspect]
     Indication: MULTIPLE SCLEROSIS
     Dosage: 44 MCG, 3 IN 1 WEEKS, SUBCUTANEOUS
     Route: 058
     Dates: start: 20040301, end: 20060601
  2. REBIF [Suspect]
     Indication: MULTIPLE SCLEROSIS
     Dosage: 44 MCG, 3 IN 1 WEEKS, SUBCUTANEOUS
     Route: 058
     Dates: start: 20070618
  3. LAMICTAL [Suspect]
  4. NARCOTIC MEDICATION(ALL OTHER THERAPEUTIC PRODUCTS) [Suspect]
  5. BIRTH CONTROL PILLS WITH IRON(ORAL CONTRACEPTIVE NOS) [Concomitant]

REACTIONS (7)
  - ANAEMIA [None]
  - DIAPHRAGMATIC RUPTURE [None]
  - FALL [None]
  - GASTROINTESTINAL HAEMORRHAGE [None]
  - MALAISE [None]
  - OESOPHAGEAL PERFORATION [None]
  - OXYGEN SATURATION DECREASED [None]
